FAERS Safety Report 10638689 (Version 1)
Quarter: 2014Q4

REPORT INFORMATION
  Report Type: Spontaneous
  Country: SE (occurrence: None)
  Receive Date: 20141204
  Receipt Date: 20141204
  Transmission Date: 20150529
  Serious: Yes (Other)
  Sender: FDA-Public Use
  Company Number: 2014-20835

PATIENT
  Age: 74 Year
  Sex: Female

DRUGS (2)
  1. EYLEA [Suspect]
     Active Substance: AFLIBERCEPT
     Indication: NEOVASCULAR AGE-RELATED MACULAR DEGENERATION
     Dosage: TOTAL OF 8 INJECTIONS, INTRAOCULAR
     Route: 031
     Dates: start: 20130701
  2. LUCENTIS [Suspect]
     Active Substance: RANIBIZUMAB
     Indication: NEOVASCULAR AGE-RELATED MACULAR DEGENERATION
     Dosage: TOTAL OF 6 INJECTIONS LUCENTIS, INTRAOCULAR
     Route: 031
     Dates: start: 20120508, end: 20130423

REACTIONS (2)
  - Arthritis reactive [None]
  - Arthralgia [None]

NARRATIVE: CASE EVENT DATE: 2014
